FAERS Safety Report 8517084 (Version 4)
Quarter: 2014Q2

REPORT INFORMATION
  Report Type: Spontaneous
  Country: US (occurrence: US)
  Receive Date: 20120417
  Receipt Date: 20140519
  Transmission Date: 20141212
  Serious: No
  Sender: FDA-Public Use
  Company Number: US-ASTRAZENECA-2011SE72590

PATIENT
  Age: 62 Year
  Sex: Female

DRUGS (12)
  1. NEXIUM [Suspect]
     Indication: GASTROOESOPHAGEAL REFLUX DISEASE
     Route: 048
     Dates: end: 201404
  2. LISINOPRIL [Suspect]
     Indication: BLOOD PRESSURE ABNORMAL
     Route: 048
  3. OTHER MEDICATION [Suspect]
     Route: 065
  4. CALCIUM + [Concomitant]
  5. FISH OIL [Concomitant]
     Dosage: DAILY
  6. GEN MUSCLE RELAXER [Concomitant]
     Dosage: TWO TIMES A DAY
  7. UNSPECIFIED STATIN [Concomitant]
     Indication: BLOOD CHOLESTEROL ABNORMAL
     Dosage: DAILY
  8. ACTOS [Concomitant]
     Indication: DIABETES MELLITUS
     Dosage: TWO TIMES A DAY
  9. VIT E [Concomitant]
     Dosage: DAILY
  10. FIBER PILL [Concomitant]
     Dosage: DAILY
  11. ORON [Concomitant]
  12. MULTIVITAMIN FOR WOMAN 50+ [Concomitant]
     Dosage: DAILY

REACTIONS (10)
  - Dysphonia [Unknown]
  - Sleep disorder due to a general medical condition [Unknown]
  - Pain [Unknown]
  - Feeling abnormal [Unknown]
  - Gastrooesophageal reflux disease [Unknown]
  - Dysphagia [Unknown]
  - Chest discomfort [Unknown]
  - Choking sensation [Unknown]
  - Malaise [Unknown]
  - Drug dose omission [Unknown]
